FAERS Safety Report 23084725 (Version 2)
Quarter: 2023Q4

REPORT INFORMATION
  Report Type: Spontaneous
  Country: JP (occurrence: JP)
  Receive Date: 20231019
  Receipt Date: 20231115
  Transmission Date: 20240110
  Serious: Yes (Other)
  Sender: FDA-Public Use
  Company Number: JP-Merck Healthcare KGaA-2023480401

PATIENT
  Age: 71 Year
  Sex: Male

DRUGS (2)
  1. ERBITUX [Suspect]
     Active Substance: CETUXIMAB
     Indication: Nasopharyngeal cancer
     Dosage: 250 MG/M2, OTHER (ONCE EVERY 1.5 WEEK)
     Route: 041
  2. PACLITAXEL [Suspect]
     Active Substance: PACLITAXEL
     Indication: Nasopharyngeal cancer
     Dosage: 80 MG/M2, OTHER (ONCE EVERY 1.5 WEEK)
     Route: 041

REACTIONS (5)
  - Pyrexia [Unknown]
  - Interstitial lung disease [Unknown]
  - Taste disorder [Unknown]
  - Off label use [Unknown]
  - Stomatitis [Unknown]
